FAERS Safety Report 25810797 (Version 1)
Quarter: 2025Q3

REPORT INFORMATION
  Report Type: Spontaneous
  Country: US (occurrence: US)
  Receive Date: 20250917
  Receipt Date: 20250917
  Transmission Date: 20251020
  Serious: No
  Sender: KARYOPHARM THERAPEUTICS
  Company Number: US-KARYOPHARM-2025KPT100737

PATIENT

DRUGS (4)
  1. SELINEXOR [Suspect]
     Active Substance: SELINEXOR
     Indication: Brain neoplasm malignant
  2. CEPHALEXIN [Concomitant]
     Active Substance: CEPHALEXIN
  3. LAMOTRIGINE [Concomitant]
     Active Substance: LAMOTRIGINE
  4. NAYZILAM [Concomitant]
     Active Substance: MIDAZOLAM

REACTIONS (2)
  - Off label use [Unknown]
  - No adverse event [Unknown]
